FAERS Safety Report 8012003-9 (Version None)
Quarter: 2011Q4

REPORT INFORMATION
  Report Type: 
  Country: None (occurrence: None)
  Receive Date: 20111228
  Receipt Date: 20111216
  Transmission Date: 20120403
  Serious: Yes (Life-Threatening, Hospitalization, Disabling, Other)
  Sender: FDA-Public Use
  Company Number: GB-GLAXOSMITHKLINE-B0763700A

PATIENT
  Sex: Female
  Weight: 109 kg

DRUGS (12)
  1. WARFARIN SODIUM [Concomitant]
     Dates: start: 20110901
  2. INSULIN [Concomitant]
  3. UNKNOWN [Concomitant]
  4. ANTIPLATELET MEDICATION [Concomitant]
     Dosage: 75MG PER DAY
     Dates: start: 20111101
  5. UNKNOWN [Concomitant]
  6. RAMIPRIL [Concomitant]
     Dosage: 125MG PER DAY
     Route: 048
  7. CITALOPRAM HYDROBROMIDE [Concomitant]
     Dosage: 10MG PER DAY
     Route: 048
  8. UNKNOWN [Concomitant]
  9. PROMACTA [Suspect]
     Indication: IDIOPATHIC THROMBOCYTOPENIC PURPURA
     Dosage: 50MG PER DAY
     Route: 048
     Dates: start: 20110101
  10. GABAPENTIN [Concomitant]
     Dosage: 600MG PER DAY
     Route: 048
  11. PREDNISOLONE [Concomitant]
     Dosage: 10MG PER DAY
     Route: 048
  12. BISOPROLOL [Concomitant]
     Dosage: 25MG PER DAY
     Route: 048

REACTIONS (5)
  - PULMONARY EMBOLISM [None]
  - DEEP VEIN THROMBOSIS [None]
  - ELECTROCARDIOGRAM ST SEGMENT DEPRESSION [None]
  - MYOCARDIAL INFARCTION [None]
  - CHEST PAIN [None]
